FAERS Safety Report 5723004-5 (Version None)
Quarter: 2008Q2

REPORT INFORMATION
  Report Type: 
  Country: None (occurrence: None)
  Receive Date: 20080430
  Receipt Date: 20071025
  Transmission Date: 20081010
  Serious: No
  Sender: FDA-Public Use
  Company Number: US-BAYER-US-2007-040980

PATIENT
  Age: 30 Year
  Sex: Female
  Weight: 82 kg

DRUGS (2)
  1. MIRENA [Suspect]
     Indication: CONTRACEPTION
     Route: 015
     Dates: start: 20021101, end: 20071024
  2. MIRENA [Suspect]
     Route: 015
     Dates: start: 20071024

REACTIONS (2)
  - AMENORRHOEA [None]
  - METRORRHAGIA [None]
